FAERS Safety Report 5669139-7 (Version None)
Quarter: 2008Q1

REPORT INFORMATION
  Report Type: 
  Country: None (occurrence: None)
  Receive Date: 20080312
  Receipt Date: 20080312
  Transmission Date: 20080703
  Serious: Yes (Hospitalization, Disabling)
  Sender: FDA-Public Use
  Company Number: None

PATIENT
  Age: 86 Year
  Sex: Male
  Weight: 80.7403 kg

DRUGS (4)
  1. VENOFER [Suspect]
     Indication: ANAEMIA
     Dosage: 200MG X1 IV
     Route: 042
     Dates: start: 20070713, end: 20070713
  2. ASPIRIN [Concomitant]
  3. URISED [Concomitant]
  4. SEROQUEL [Concomitant]

REACTIONS (4)
  - HYPERTENSION [None]
  - INFUSION RELATED REACTION [None]
  - LETHARGY [None]
  - PYREXIA [None]
